FAERS Safety Report 11376470 (Version 3)
Quarter: 2016Q4

REPORT INFORMATION
  Report Type: Spontaneous
  Country: US (occurrence: US)
  Receive Date: 20150813
  Receipt Date: 20161201
  Transmission Date: 20170206
  Serious: No
  Sender: FDA-Public Use
  Company Number: US-PFIZER INC-2015266843

PATIENT
  Age: 63 Year
  Sex: Female
  Weight: 54 kg

DRUGS (20)
  1. CRESTOR [Concomitant]
     Active Substance: ROSUVASTATIN CALCIUM
     Dosage: 10 MG, DAILY
  2. LIDOCAINE. [Concomitant]
     Active Substance: LIDOCAINE
     Dosage: 5 ML, AS NEEDED (2%. TAKE 5 ML BY MOUTH AS NEEDED)
     Route: 048
  3. LYRICA [Suspect]
     Active Substance: PREGABALIN
     Indication: FIBROMYALGIA
     Dosage: 200 MG, 3X/DAY (EVERY 8 HOURS)
     Route: 048
  4. FOSAMAX [Concomitant]
     Active Substance: ALENDRONATE SODIUM
     Dosage: 70 MG, WEEKLY (1 TABLET ONCE A WEEK (TUESDAY))
  5. NEXIUM [Concomitant]
     Active Substance: ESOMEPRAZOLE MAGNESIUM
     Dosage: 40 MG, DAILY (1 CAPSULE DAILY)
  6. BENTYL [Concomitant]
     Active Substance: DICYCLOMINE HYDROCHLORIDE
     Dosage: 20 MG, AS NEEDED (1 TABLET FOUR TIMES A DAY AS NEEDED)
  7. MORPHINE [Concomitant]
     Active Substance: MORPHINE
     Dosage: 30 MG, 2X/DAY (30 MG. 1 TABLET EVERY 12 HOURS)
  8. PROMETHAZINE HCL [Concomitant]
     Active Substance: PROMETHAZINE HYDROCHLORIDE
     Dosage: 25 MG, AS NEEDED
  9. ZANAFLEX [Concomitant]
     Active Substance: TIZANIDINE HYDROCHLORIDE
     Dosage: 4 MG, 3X/DAY (1 TABLET EVERY 8 HOURS)
  10. FLUTICASONE PROPIONATE. [Concomitant]
     Active Substance: FLUTICASONE PROPIONATE
     Dosage: 50 UG, 2X/DAY (2 SPRAY IN EACH NOSTRIL ONCE A DAY)
     Route: 045
  11. VALTREX [Concomitant]
     Active Substance: VALACYCLOVIR HYDROCHLORIDE
     Indication: HERPES SIMPLEX
     Dosage: UNK, AS NEEDED (1 GRAM. TAKE 2 TABLET BY MOUTH TWICE A DAY WHEN NEEDED )
     Route: 048
  12. LYRICA [Suspect]
     Active Substance: PREGABALIN
     Dosage: 200MG, 3X/DAY
     Route: 048
     Dates: start: 2011, end: 20160418
  13. FIORICET [Concomitant]
     Active Substance: ACETAMINOPHEN\BUTALBITAL\CAFFEINE
     Dosage: 1 DF, AS NEEDED (BUTALBITAL: 50 MG , CAFFEINE: 40 MG, PARACETAMOL: 325 MG)
  14. BREO ELLIPTA [Concomitant]
     Active Substance: FLUTICASONE FUROATE\VILANTEROL TRIFENATATE
     Dosage: UNK, DAILY(10-325MG,1 PUFF IN AM DAILY)(FLUTICASONE FUROATE:100 MCG/ VILANTEROL TRIFENATATE: 25 MCG)
     Route: 055
  15. QUESTRAN [Concomitant]
     Active Substance: CHOLESTYRAMINE
     Dosage: 4 G, 1X/DAY (4 GRAMS EACH PACKET. DISSOLVE 1 PACKET IN LIQUID ONCE DAILY)
  16. VITAMIN D [Concomitant]
     Active Substance: CHOLECALCIFEROL
     Dosage: 500 MG, DAILY
  17. XANAX [Concomitant]
     Active Substance: ALPRAZOLAM
     Indication: ANXIETY
     Dosage: UNK, AS NEEDED (1 TO 2 TABLET DAILY, AS NEEDED)
  18. PERCOCET [Concomitant]
     Active Substance: ACETAMINOPHEN\OXYCODONE HYDROCHLORIDE
     Dosage: 1 DF, 2X/DAY (OXYCODONE HYDROCHLORIDE: 10MG/ PARACETAMOL: 325 MG)
  19. TUDORZA PRESSAIR [Concomitant]
     Active Substance: ACLIDINIUM BROMIDE
     Dosage: 400 UG, 2X/DAY (400 MCG. 1 PUFF TWICE A DAY)
     Route: 055
  20. VIIBRYD [Concomitant]
     Active Substance: VILAZODONE HYDROCHLORIDE
     Dosage: 40 MG, DAILY

REACTIONS (4)
  - Chills [Not Recovered/Not Resolved]
  - Vomiting [Not Recovered/Not Resolved]
  - Drug withdrawal syndrome [Not Recovered/Not Resolved]
  - Diarrhoea [Not Recovered/Not Resolved]

NARRATIVE: CASE EVENT DATE: 20160419
